FAERS Safety Report 20096456 (Version 1)
Quarter: 2021Q4

REPORT INFORMATION
  Report Type: Spontaneous
  Country: US (occurrence: US)
  Receive Date: 20211122
  Receipt Date: 20211122
  Transmission Date: 20220303
  Serious: Yes (Other)
  Sender: FDA-Public Use
  Company Number: US-PFIZER INC-202101581220

PATIENT
  Age: 63 Year
  Sex: Female
  Weight: 75.75 kg

DRUGS (3)
  1. NEURONTIN [Suspect]
     Active Substance: GABAPENTIN
     Indication: Hypoaesthesia
     Dosage: UNK
  2. NEURONTIN [Suspect]
     Active Substance: GABAPENTIN
     Indication: Paraesthesia
  3. NEURONTIN [Suspect]
     Active Substance: GABAPENTIN
     Indication: Pain in extremity

REACTIONS (4)
  - Drug hypersensitivity [Unknown]
  - Swollen tongue [Recovered/Resolved]
  - Dysarthria [Recovered/Resolved]
  - Off label use [Unknown]
